FAERS Safety Report 16429829 (Version 1)
Quarter: 2019Q2

REPORT INFORMATION
  Report Type: Spontaneous
  Country: JP (occurrence: JP)
  Receive Date: 20190614
  Receipt Date: 20190614
  Transmission Date: 20190711
  Serious: Yes (Death, Other)
  Sender: FDA-Public Use
  Company Number: JP-ASTELLAS-2018JP023985

PATIENT
  Age: 11 Year
  Sex: Male

DRUGS (5)
  1. XOSPATA [Suspect]
     Active Substance: GILTERITINIB
     Indication: ACUTE MYELOID LEUKAEMIA
     Route: 050
     Dates: start: 20181217
  2. XOSPATA [Suspect]
     Active Substance: GILTERITINIB
     Route: 048
  3. XOSPATA [Suspect]
     Active Substance: GILTERITINIB
     Dosage: UNK UNK, UNKNOWN FREQ.
     Route: 048
     Dates: end: 20190604
  4. XOSPATA [Suspect]
     Active Substance: GILTERITINIB
     Route: 050
  5. NEXAVAR [Concomitant]
     Active Substance: SORAFENIB
     Indication: PRODUCT USED FOR UNKNOWN INDICATION
     Dosage: UNK UNK, UNKNOWN FREQ.
     Route: 065
     Dates: start: 201807

REACTIONS (4)
  - Hepatic function abnormal [Recovered/Resolved]
  - Philadelphia chromosome positive [Unknown]
  - Off label use [Unknown]
  - Acute myeloid leukaemia [Fatal]

NARRATIVE: CASE EVENT DATE: 20181217
